FAERS Safety Report 5918607-9 (Version None)
Quarter: 2008Q3

REPORT INFORMATION
  Report Type: 
  Country: None (occurrence: None)
  Receive Date: 20080929
  Receipt Date: 20070727
  Transmission Date: 20090109
  Serious: Yes (Death, Hospitalization)
  Sender: FDA-Public Use
  Company Number: 163-20785-07071529

PATIENT
  Age: 19 Year
  Sex: Female

DRUGS (10)
  1. THALOMID [Suspect]
     Indication: BRAIN NEOPLASM
     Dosage: ORAL
     Route: 048
     Dates: start: 20070410, end: 20070419
  2. DECADRON [Concomitant]
  3. HYDROCORTISONE [Concomitant]
  4. ZANTAC 150 [Concomitant]
  5. LEVOXYL [Concomitant]
  6. DEPAKOTE [Concomitant]
  7. RITALIN [Concomitant]
  8. AVIAN (EUGYNON) [Concomitant]
  9. MIRALAX [Concomitant]
  10. DULCOLAX [Concomitant]

REACTIONS (5)
  - BODY TEMPERATURE DECREASED [None]
  - DISEASE PROGRESSION [None]
  - OEDEMA PERIPHERAL [None]
  - SKIN DISCOLOURATION [None]
  - SUBCLAVIAN VEIN THROMBOSIS [None]
